FAERS Safety Report 7270186-2 (Version None)
Quarter: 2011Q1

REPORT INFORMATION
  Report Type: 
  Country: None (occurrence: None)
  Receive Date: 20110202
  Receipt Date: 20110126
  Transmission Date: 20110831
  Serious: Yes (Life-Threatening, Hospitalization)
  Sender: FDA-Public Use
  Company Number: HR-ELI_LILLY_AND_COMPANY-HR201101007362

PATIENT
  Age: 75 Year

DRUGS (3)
  1. NORMABEL [Concomitant]
     Dosage: 5 MG, 3/D
  2. ZYPREXA [Suspect]
     Indication: SCHIZOPHRENIA
     Dosage: 5 MG, UNK
     Dates: start: 20080101, end: 20110124
  3. AKINETON /00079501/ [Concomitant]
     Dosage: UNK, 2/D

REACTIONS (2)
  - MYOCARDIAL INFARCTION [None]
  - HYPERGLYCAEMIA [None]
